FAERS Safety Report 18104625 (Version 1)
Quarter: 2020Q3

REPORT INFORMATION
  Report Type: Spontaneous
  Country: US (occurrence: US)
  Receive Date: 20200803
  Receipt Date: 20200803
  Transmission Date: 20201103
  Serious: Yes (Hospitalization)
  Sender: FDA-Public Use
  Company Number: US-JNJFOC-20200739903

PATIENT
  Age: 59 Year
  Sex: Male

DRUGS (10)
  1. CLOTRIMAZOLE. [Concomitant]
     Active Substance: CLOTRIMAZOLE
     Route: 061
  2. REMICADE [Suspect]
     Active Substance: INFLIXIMAB
     Indication: PSORIATIC ARTHROPATHY
     Route: 042
  3. HYDROCODONE/ACETAMINOPHEN [Concomitant]
     Active Substance: ACETAMINOPHEN\HYDROCODONE
     Dosage: 7.5MG/325
  4. TRAMADOL. [Concomitant]
     Active Substance: TRAMADOL
  5. ERYTHROMYCIN. [Concomitant]
     Active Substance: ERYTHROMYCIN
     Indication: INFECTION PROPHYLAXIS
  6. NAPROXEN. [Concomitant]
     Active Substance: NAPROXEN
  7. REMICADE [Suspect]
     Active Substance: INFLIXIMAB
     Route: 042
  8. FLUOCINONIDE. [Concomitant]
     Active Substance: FLUOCINONIDE
     Indication: PSORIASIS
     Route: 061
  9. CITALOPRAM [Concomitant]
     Active Substance: CITALOPRAM HYDROBROMIDE
  10. FOLIC ACID. [Concomitant]
     Active Substance: FOLIC ACID

REACTIONS (5)
  - Product use issue [Unknown]
  - Infusion related reaction [Unknown]
  - Eosinophilic fasciitis [Recovered/Resolved]
  - Off label use [Unknown]
  - Urticaria [Unknown]
